FAERS Safety Report 9961962 (Version 1)
Quarter: 2014Q1

REPORT INFORMATION
  Report Type: Report from Study
  Country: US (occurrence: US)
  Receive Date: 20140305
  Receipt Date: 20140305
  Transmission Date: 20141002
  Serious: No
  Sender: FDA-Public Use
  Company Number: US-ABBVIE-13P-163-1113664-00

PATIENT
  Age: 36 Year
  Sex: Female
  Weight: 54.48 kg

DRUGS (3)
  1. HUMIRA [Suspect]
     Indication: RHEUMATOID ARTHRITIS
     Route: 058
     Dates: start: 2011
  2. PROBIOTICS NOS [Concomitant]
     Indication: GASTRIC DISORDER
  3. LEXAPRO [Concomitant]
     Indication: ANXIETY

REACTIONS (2)
  - Sinusitis [Recovered/Resolved]
  - Rheumatoid arthritis [Recovering/Resolving]
